FAERS Safety Report 19157273 (Version 1)
Quarter: 2021Q2

REPORT INFORMATION
  Report Type: Spontaneous
  Country: US (occurrence: US)
  Receive Date: 20210419
  Receipt Date: 20210419
  Transmission Date: 20210717
  Serious: Yes (Other)
  Sender: FDA-Public Use
  Company Number: None

PATIENT
  Age: 35 Year
  Sex: Female
  Weight: 60.75 kg

DRUGS (2)
  1. FLUOXETINE 20 MG/5 ML SOLUTION [Suspect]
     Active Substance: FLUOXETINE HYDROCHLORIDE
     Indication: DEPRESSION
     Dosage: ?          QUANTITY:2.5 ML;?
     Route: 048
     Dates: start: 20210409, end: 20210419
  2. FLUOXETINE 20 MG/5 ML SOLUTION [Suspect]
     Active Substance: FLUOXETINE HYDROCHLORIDE
     Indication: ANXIETY
     Dosage: ?          QUANTITY:2.5 ML;?
     Route: 048
     Dates: start: 20210409, end: 20210419

REACTIONS (7)
  - Anxiety [None]
  - Headache [None]
  - Blood glucose increased [None]
  - Product taste abnormal [None]
  - Product odour abnormal [None]
  - Manufacturing issue [None]
  - Dizziness [None]

NARRATIVE: CASE EVENT DATE: 20210409
